FAERS Safety Report 10372706 (Version 1)
Quarter: 2014Q3

REPORT INFORMATION
  Report Type: Spontaneous
  Country: US (occurrence: US)
  Receive Date: 20140808
  Receipt Date: 20140808
  Transmission Date: 20150326
  Serious: No
  Sender: FDA-Public Use
  Company Number: US-BRISTOL-MYERS SQUIBB COMPANY-19345933

PATIENT
  Age: 72 Year
  Sex: Male

DRUGS (1)
  1. SPRYCEL [Suspect]
     Active Substance: DASATINIB
     Indication: MULTIPLE SCLEROSIS
     Dosage: TABS
     Route: 048
     Dates: start: 201303, end: 201304

REACTIONS (2)
  - Blood count abnormal [Unknown]
  - Off label use [Unknown]
